FAERS Safety Report 13585491 (Version 1)
Quarter: 2017Q2

REPORT INFORMATION
  Report Type: Spontaneous
  Country: BR (occurrence: BR)
  Receive Date: 20170526
  Receipt Date: 20170526
  Transmission Date: 20170830
  Serious: Yes (Other)
  Sender: FDA-Public Use
  Company Number: BR-PFIZER INC-2017226517

PATIENT
  Age: 33 Year
  Sex: Male

DRUGS (1)
  1. XALATAN [Suspect]
     Active Substance: LATANOPROST
     Dosage: UNK
     Dates: start: 2012

REACTIONS (2)
  - Blindness unilateral [Unknown]
  - Retinal tear [Unknown]

NARRATIVE: CASE EVENT DATE: 2012
